FAERS Safety Report 23938187 (Version 1)
Quarter: 2024Q2

REPORT INFORMATION
  Report Type: Spontaneous
  Country: US (occurrence: US)
  Receive Date: 20240604
  Receipt Date: 20240604
  Transmission Date: 20240716
  Serious: No
  Sender: FDA-Public Use
  Company Number: US-Calliditas-2024CAL00865

PATIENT
  Age: 37 Year
  Sex: Male
  Weight: 177 kg

DRUGS (1)
  1. TARPEYO [Suspect]
     Active Substance: BUDESONIDE
     Indication: IgA nephropathy
     Route: 048
     Dates: start: 20240330

REACTIONS (6)
  - Blood pressure increased [Unknown]
  - Dizziness [Unknown]
  - Urinary incontinence [Unknown]
  - Protein total increased [Unknown]
  - White blood cell count increased [Unknown]
  - Product residue present [Unknown]
